FAERS Safety Report 8190306 (Version 2)
Quarter: 2012Q4

REPORT INFORMATION
  Report Type: 
  Country: GB (occurrence: GB)
  Receive Date: 20111019
  Receipt Date: 20120830
  Transmission Date: 20130627
  Serious: Yes (Other)
  Sender: FDA-Public Use
  Company Number: GB-ROCHE-1002095

PATIENT
  Age: 65 Year
  Sex: Male

DRUGS (4)
  1. CAPECITABINE [Suspect]
     Indication: COLON CANCER STAGE III
  2. FLUOROURACIL [Suspect]
     Indication: COLON CANCER STAGE III
  3. OXALIPLATIN [Suspect]
     Indication: COLON CANCER STAGE III
  4. OXALIPLATIN [Suspect]

REACTIONS (2)
  - Pulmonary fibrosis [Recovering/Resolving]
  - Diarrhoea [Recovering/Resolving]
